FAERS Safety Report 12390483 (Version 1)
Quarter: 2016Q2

REPORT INFORMATION
  Report Type: Spontaneous
  Country: GB (occurrence: GB)
  Receive Date: 20160520
  Receipt Date: 20160520
  Transmission Date: 20160815
  Serious: Yes (Life-Threatening, Hospitalization, Other)
  Sender: FDA-Public Use
  Company Number: GB-JNJFOC-20160513604

PATIENT
  Age: 35 Year
  Sex: Male

DRUGS (3)
  1. ORAMORPH [Suspect]
     Active Substance: MORPHINE SULFATE
     Indication: PRODUCT USED FOR UNKNOWN INDICATION
     Dosage: DOSAGE: 2 BOTTLES
     Route: 065
  2. CHAMPIX [Suspect]
     Active Substance: VARENICLINE TARTRATE
     Indication: SMOKING CESSATION THERAPY
     Dosage: CUMULATIVE DOSE TO FIRST REACTION (NO): 56.0
     Route: 065
     Dates: start: 20160401
  3. COCODAMOL [Suspect]
     Active Substance: ACETAMINOPHEN\CODEINE PHOSPHATE
     Indication: PRODUCT USED FOR UNKNOWN INDICATION
     Route: 065

REACTIONS (6)
  - Liver function test abnormal [Recovered/Resolved]
  - Loss of consciousness [Recovering/Resolving]
  - Liver injury [Unknown]
  - Acidosis [Unknown]
  - Acute kidney injury [Unknown]
  - Suicide attempt [Recovering/Resolving]

NARRATIVE: CASE EVENT DATE: 20160429
